FAERS Safety Report 9055537 (Version 2)
Quarter: 2013Q1

REPORT INFORMATION
  Report Type: Report from Study
  Country: JP (occurrence: JP)
  Receive Date: 20130206
  Receipt Date: 20130320
  Transmission Date: 20140127
  Serious: Yes (Hospitalization)
  Sender: FDA-Public Use
  Company Number: JP-GLAXOSMITHKLINE-B0864710A

PATIENT
  Age: 31 None
  Sex: Female

DRUGS (2)
  1. TYKERB [Suspect]
     Indication: BREAST CANCER
     Route: 048
     Dates: start: 20121002, end: 20121112
  2. XELODA [Suspect]
     Route: 048
     Dates: start: 20121002, end: 20121112

REACTIONS (3)
  - Rash [Recovered/Resolved]
  - Stomatitis [Recovered/Resolved]
  - Myelodysplastic syndrome [Not Recovered/Not Resolved]
